FAERS Safety Report 4373183-X (Version None)
Quarter: 2004Q2

REPORT INFORMATION
  Report Type: 
  Country: None (occurrence: None)
  Receive Date: 20040603
  Receipt Date: 20040514
  Transmission Date: 20050107
  Serious: Yes (Hospitalization, Other)
  Sender: FDA-Public Use
  Company Number: USA040362204

PATIENT
  Age: 73 Year
  Sex: Female
  Weight: 62 kg

DRUGS (5)
  1. FORTEO [Suspect]
     Indication: OSTEOPOROSIS
     Dates: start: 20040219
  2. EVISTA [Suspect]
     Indication: BONE DISORDER
     Dates: start: 20000101
  3. ASPIRIN [Concomitant]
  4. VITAMINS ONE A DAY [Concomitant]
  5. CALCIUM [Concomitant]

REACTIONS (11)
  - ASTHENIA [None]
  - COLONIC HAEMORRHAGE [None]
  - COLONIC POLYP [None]
  - CONSTIPATION [None]
  - DIVERTICULITIS [None]
  - FALL [None]
  - FRACTURE [None]
  - MOUTH ULCERATION [None]
  - PALATAL DISORDER [None]
  - PHARMACEUTICAL PRODUCT COMPLAINT [None]
  - WRIST FRACTURE [None]
